FAERS Safety Report 6830486-4 (Version None)
Quarter: 2010Q3

REPORT INFORMATION
  Report Type: 
  Country: None (occurrence: None)
  Receive Date: 20100712
  Receipt Date: 20100702
  Transmission Date: 20110219
  Serious: No
  Sender: FDA-Public Use
  Company Number: US-BIOGENIDEC-2010BI023004

PATIENT
  Age: 42 Year
  Sex: Female

DRUGS (4)
  1. TYSABRI [Suspect]
     Indication: MULTIPLE SCLEROSIS
     Route: 042
     Dates: start: 20050205, end: 20050207
  2. TYSABRI [Suspect]
     Route: 042
     Dates: start: 20090101, end: 20090901
  3. TYSABRI [Suspect]
     Route: 042
     Dates: start: 20100301
  4. AVONEX [Concomitant]
     Indication: MULTIPLE SCLEROSIS
     Route: 030
     Dates: start: 20030830, end: 20070101

REACTIONS (1)
  - POOR VENOUS ACCESS [None]
